FAERS Safety Report 8033780-7 (Version None)
Quarter: 2012Q1

REPORT INFORMATION
  Report Type: 
  Country: None (occurrence: None)
  Receive Date: 20120110
  Receipt Date: 20120105
  Transmission Date: 20120608
  Serious: No
  Sender: FDA-Public Use
  Company Number: US-PFIZER INC-2012004022

PATIENT
  Sex: Female
  Weight: 72.562 kg

DRUGS (2)
  1. MEDROL [Suspect]
     Dosage: 36 MG, 1X/DAY
     Route: 048
     Dates: start: 20120103
  2. MEDROL [Suspect]
     Indication: ASTHMA
     Dosage: 32 MG, 1X/DAY
     Route: 048
     Dates: start: 20120101, end: 20120103

REACTIONS (2)
  - DRUG INEFFECTIVE [None]
  - BLOOD GLUCOSE ABNORMAL [None]
